FAERS Safety Report 6725999-X (Version None)
Quarter: 2010Q2

REPORT INFORMATION
  Report Type: 
  Country: None (occurrence: None)
  Receive Date: 20100514
  Receipt Date: 20100510
  Transmission Date: 20101027
  Serious: Yes (Other)
  Sender: FDA-Public Use
  Company Number: US-ELI_LILLY_AND_COMPANY-US201005002470

PATIENT
  Sex: Female

DRUGS (2)
  1. HUMULIN R [Suspect]
     Indication: TYPE 1 DIABETES MELLITUS
     Dates: start: 19900101
  2. HUMULIN N [Suspect]
     Indication: TYPE 1 DIABETES MELLITUS
     Dates: start: 19900101

REACTIONS (4)
  - INTENTIONAL DRUG MISUSE [None]
  - POOR QUALITY DRUG ADMINISTERED [None]
  - RENAL FAILURE [None]
  - VISUAL ACUITY REDUCED [None]
